FAERS Safety Report 5379891-6 (Version None)
Quarter: 2007Q3

REPORT INFORMATION
  Report Type: 
  Country: None (occurrence: None)
  Receive Date: 20070706
  Receipt Date: 20070704
  Transmission Date: 20080115
  Serious: Yes (Death, Other)
  Sender: FDA-Public Use
  Company Number: PHBS2007JP08570

PATIENT
  Age: 10 Year
  Sex: Male

DRUGS (5)
  1. SANDIMMUNE [Suspect]
     Indication: CORD BLOOD TRANSPLANT THERAPY
     Route: 042
  2. METHOTREXATE [Suspect]
     Indication: CORD BLOOD TRANSPLANT THERAPY
     Route: 065
  3. BUSULFAN [Concomitant]
     Dosage: 16 MG/KG
  4. L-PAM [Concomitant]
  5. TACROLIMUS [Suspect]
     Indication: CORD BLOOD TRANSPLANT THERAPY
     Route: 065

REACTIONS (8)
  - ACUTE GRAFT VERSUS HOST DISEASE IN INTESTINE [None]
  - CHRONIC GRAFT VERSUS HOST DISEASE [None]
  - CONVULSION [None]
  - DEPRESSED LEVEL OF CONSCIOUSNESS [None]
  - HAEMORRHAGE INTRACRANIAL [None]
  - NEUROLOGICAL SYMPTOM [None]
  - PAIN IN EXTREMITY [None]
  - THROMBOTIC MICROANGIOPATHY [None]
